FAERS Safety Report 8868972 (Version 2)
Quarter: 2012Q4

REPORT INFORMATION
  Report Type: 
  Country: US (occurrence: US)
  Receive Date: 20121027
  Receipt Date: 20121112
  Transmission Date: 20130627
  Serious: Yes (Death, Hospitalization)
  Sender: FDA-Public Use
  Company Number: US-009507513-1210USA010137

PATIENT
  Age: 79 None
  Sex: Male

DRUGS (8)
  1. JANUMET [Suspect]
     Indication: TYPE 2 DIABETES MELLITUS
     Dosage: 1000/50mg, bid
     Route: 048
  2. SYNTHROID [Concomitant]
  3. LIPITOR [Concomitant]
  4. IMDUR [Concomitant]
  5. METOPROLOL [Concomitant]
  6. COGENTIN [Concomitant]
  7. FLUPHENAZINE [Concomitant]
  8. GLIMEPIRIDE [Concomitant]

REACTIONS (4)
  - Cardiac arrest [Fatal]
  - Prostatomegaly [Not Recovered/Not Resolved]
  - Urinary retention [Unknown]
  - Abdominal pain [Unknown]
